FAERS Safety Report 17957741 (Version 1)
Quarter: 2020Q2

REPORT INFORMATION
  Report Type: Spontaneous
  Country: CN (occurrence: CN)
  Receive Date: 20200629
  Receipt Date: 20200629
  Transmission Date: 20200714
  Serious: Yes (Other)
  Sender: FDA-Public Use
  Company Number: NVSC2020CN182438

PATIENT
  Age: 51 Year
  Sex: Female
  Weight: 50 kg

DRUGS (4)
  1. LEVOFLOXACIN HYDROCHLORIDE AND SODIUM CHLORID [Concomitant]
     Indication: ABDOMINAL INFECTION
     Dosage: 0.400 G, QD
     Route: 041
     Dates: start: 20200531, end: 20200601
  2. EVEROLIMUS. [Suspect]
     Active Substance: EVEROLIMUS
     Indication: GALLBLADDER CANCER
     Dosage: 10 MG, QD
     Route: 048
     Dates: start: 20200528, end: 20200529
  3. SULPERAZONE [Concomitant]
     Active Substance: CEFOPERAZONE SODIUM\SULBACTAM SODIUM
     Indication: ABDOMINAL INFECTION
     Dosage: 3 G, QD
     Route: 041
     Dates: start: 20200601, end: 20200603
  4. SODIUM CHLORIDE. [Concomitant]
     Active Substance: SODIUM CHLORIDE
     Indication: PRODUCT USE IN UNAPPROVED INDICATION
     Dosage: 100 ML, QD
     Route: 041
     Dates: start: 20200601, end: 20200603

REACTIONS (4)
  - Panic reaction [Recovering/Resolving]
  - Delirium [Recovering/Resolving]
  - Asthenia [Recovering/Resolving]
  - Altered state of consciousness [Recovering/Resolving]

NARRATIVE: CASE EVENT DATE: 20200601
